FAERS Safety Report 11631127 (Version 5)
Quarter: 2016Q1

REPORT INFORMATION
  Report Type: Spontaneous
  Country: US (occurrence: US)
  Receive Date: 20151014
  Receipt Date: 20160202
  Transmission Date: 20160525
  Serious: Yes (Hospitalization)
  Sender: FDA-Public Use
  Company Number: US-BAUSCH-BL-2015-021961

PATIENT
  Age: 12 Year
  Sex: Female

DRUGS (2)
  1. RUCONEST [Suspect]
     Active Substance: HUMAN C1-ESTERASE INHIBITOR
     Indication: HEREDITARY ANGIOEDEMA
     Route: 065
     Dates: start: 201510
  2. RUCONEST [Suspect]
     Active Substance: HUMAN C1-ESTERASE INHIBITOR
     Dosage: FRIST DOSE AT AROUND 6:30 AM AND SECOND DOSE AT 11:00 PM
     Route: 065
     Dates: start: 20151014

REACTIONS (9)
  - Product solubility abnormal [Unknown]
  - No therapeutic response [Unknown]
  - Secretion discharge [Not Recovered/Not Resolved]
  - Nausea [Unknown]
  - Headache [Unknown]
  - Diarrhoea [Not Recovered/Not Resolved]
  - Pain [Not Recovered/Not Resolved]
  - Eye swelling [Unknown]
  - Photophobia [Unknown]

NARRATIVE: CASE EVENT DATE: 201510
